FAERS Safety Report 23842409 (Version 1)
Quarter: 2024Q2

REPORT INFORMATION
  Report Type: Spontaneous
  Country: US (occurrence: US)
  Receive Date: 20240510
  Receipt Date: 20240510
  Transmission Date: 20240716
  Serious: Yes (Other)
  Sender: FDA-Public Use
  Company Number: US-AUROBINDO-AUR-APL-2024-021656

PATIENT
  Age: 51 Year
  Sex: Male

DRUGS (7)
  1. ETOMIDATE [Suspect]
     Active Substance: ETOMIDATE
     Indication: Cushing^s syndrome
     Dosage: 3 MILLIGRAM/HOUR
     Route: 042
  2. KETOCONAZOLE [Suspect]
     Active Substance: KETOCONAZOLE
     Indication: Ectopic ACTH syndrome
     Dosage: UNK
     Route: 065
  3. KETOCONAZOLE [Suspect]
     Active Substance: KETOCONAZOLE
     Indication: Neuroendocrine carcinoma metastatic
  4. KETOCONAZOLE [Suspect]
     Active Substance: KETOCONAZOLE
     Indication: Rebound effect
  5. METYRAPONE [Suspect]
     Active Substance: METYRAPONE
     Indication: Ectopic ACTH syndrome
     Dosage: UNK
     Route: 065
  6. METYRAPONE [Suspect]
     Active Substance: METYRAPONE
     Indication: Neuroendocrine carcinoma metastatic
  7. METYRAPONE [Suspect]
     Active Substance: METYRAPONE
     Indication: Rebound effect

REACTIONS (2)
  - Rebound effect [Unknown]
  - Drug ineffective [Unknown]
